FAERS Safety Report 6471041-8 (Version None)
Quarter: 2009Q4

REPORT INFORMATION
  Report Type: 
  Country: None (occurrence: None)
  Receive Date: 20091203
  Receipt Date: 20091123
  Transmission Date: 20100525
  Serious: Yes (Other)
  Sender: FDA-Public Use
  Company Number: US-GENENTECH-294053

PATIENT
  Sex: Male
  Weight: 71.9 kg

DRUGS (2)
  1. NUTROPIN [Suspect]
     Indication: GROWTH RETARDATION
     Dosage: 0.9 MG, QD
     Route: 058
     Dates: start: 20080501
  2. METADATE CD [Concomitant]
     Indication: DRUG USE FOR UNKNOWN INDICATION
     Dosage: 30 MG, QD
     Dates: start: 20080101, end: 20090401

REACTIONS (3)
  - GAIT DISTURBANCE [None]
  - OSTEOCHONDROSIS [None]
  - X-RAY ABNORMAL [None]
